FAERS Safety Report 19749191 (Version 8)
Quarter: 2023Q1

REPORT INFORMATION
  Report Type: Report from Study
  Country: GT (occurrence: GT)
  Receive Date: 20210826
  Receipt Date: 20230116
  Transmission Date: 20230418
  Serious: Yes (Other)
  Sender: FDA-Public Use
  Company Number: NVSC2021GT192343

PATIENT
  Age: 66 Year
  Sex: Male

DRUGS (5)
  1. SECUKINUMAB [Suspect]
     Active Substance: SECUKINUMAB
     Indication: Psoriatic arthropathy
     Dosage: 150 MG, QW (VIAL)
     Route: 058
     Dates: start: 20210723
  2. SECUKINUMAB [Suspect]
     Active Substance: SECUKINUMAB
     Dosage: 150 MG, QMO
     Route: 058
  3. SECUKINUMAB [Suspect]
     Active Substance: SECUKINUMAB
     Dosage: 150 MG, EVERY 2 MONTHS
     Route: 058
  4. SECUKINUMAB [Suspect]
     Active Substance: SECUKINUMAB
     Dosage: 150 MG, QMO
     Route: 058
  5. SECUKINUMAB [Suspect]
     Active Substance: SECUKINUMAB
     Dosage: 150 MG, EVERY 2 MONTHS
     Route: 058

REACTIONS (18)
  - Syncope [Unknown]
  - Memory impairment [Unknown]
  - Headache [Unknown]
  - Head injury [Unknown]
  - Fall [Unknown]
  - Back pain [Unknown]
  - Chest pain [Unknown]
  - Neck pain [Unknown]
  - Arthralgia [Unknown]
  - Pain in extremity [Unknown]
  - Depressed mood [Unknown]
  - Pain [Unknown]
  - Dizziness [Unknown]
  - Insomnia [Unknown]
  - Somnolence [Unknown]
  - COVID-19 [Unknown]
  - Off label use [Unknown]
  - Drug ineffective [Unknown]

NARRATIVE: CASE EVENT DATE: 20210813
